FAERS Safety Report 11774492 (Version 2)
Quarter: 2015Q4

REPORT INFORMATION
  Report Type: Spontaneous
  Country: US (occurrence: US)
  Receive Date: 20151124
  Receipt Date: 20151204
  Transmission Date: 20160304
  Serious: Yes (Death, Hospitalization)
  Sender: FDA-Public Use
  Company Number: US-FRESENIUS KABI-FK201506112

PATIENT
  Age: 64 Year
  Sex: Male

DRUGS (3)
  1. CYTARABINE (MANUFACTURER UNKNOWN) [Suspect]
     Active Substance: CYTARABINE
     Indication: ACUTE MYELOID LEUKAEMIA
     Route: 065
  2. DAUNORUBICIN [Suspect]
     Active Substance: DAUNORUBICIN
     Indication: ACUTE MYELOID LEUKAEMIA
  3. CICLOSPORIN [Suspect]
     Active Substance: CYCLOSPORINE
     Indication: ACUTE MYELOID LEUKAEMIA

REACTIONS (4)
  - Clostridium difficile colitis [Recovered/Resolved]
  - Adrenal insufficiency [Recovered/Resolved]
  - Febrile neutropenia [Recovered/Resolved]
  - Sepsis [Recovered/Resolved]
